FAERS Safety Report 5758626-9 (Version None)
Quarter: 2008Q2

REPORT INFORMATION
  Report Type: 
  Country: None (occurrence: None)
  Receive Date: 20080604
  Receipt Date: 20080526
  Transmission Date: 20081010
  Serious: Yes (Other)
  Sender: FDA-Public Use
  Company Number: IE-JNJFOC-20080505581

PATIENT
  Age: 67 Year
  Sex: Male

DRUGS (5)
  1. INFLIXIMAB [Suspect]
     Indication: COLITIS ULCERATIVE
     Dosage: 6TH INFUSION
     Route: 042
  2. MESALAMINE [Concomitant]
     Indication: COLITIS ULCERATIVE
  3. HYDROCORTISONE [Concomitant]
     Indication: COLITIS ULCERATIVE
     Route: 042
  4. AZATHIOPRINE SODIUM [Concomitant]
  5. AZATHIOPRINE SODIUM [Concomitant]
     Indication: COLITIS ULCERATIVE

REACTIONS (1)
  - RETINAL VEIN THROMBOSIS [None]
